FAERS Safety Report 8047997-9 (Version None)
Quarter: 2012Q1

REPORT INFORMATION
  Report Type: 
  Country: None (occurrence: None)
  Receive Date: 20120116
  Receipt Date: 20120112
  Transmission Date: 20120608
  Serious: Yes (Death)
  Sender: FDA-Public Use
  Company Number: US-ABBOTT-12P-163-0893091-02

PATIENT
  Sex: Male

DRUGS (6)
  1. HYDROCHLOROTHIAZIDE [Concomitant]
     Indication: HYPERTENSION
     Dates: start: 20070801
  2. CLOBEX [Concomitant]
     Indication: PSORIASIS
     Route: 061
     Dates: start: 20110408
  3. VECTICAL [Concomitant]
     Indication: PSORIASIS
     Route: 061
     Dates: start: 20101012
  4. CRESTOR [Concomitant]
     Indication: BLOOD CHOLESTEROL INCREASED
     Dates: start: 20071001
  5. METOPROLOL TARTRATE [Concomitant]
     Indication: HYPERTENSION
     Dates: start: 20100201
  6. HUMIRA [Suspect]
     Indication: PSORIASIS
     Route: 058
     Dates: start: 20110414, end: 20110429

REACTIONS (1)
  - DEATH [None]
